FAERS Safety Report 19355770 (Version 1)
Quarter: 2021Q2

REPORT INFORMATION
  Report Type: Spontaneous
  Country: US (occurrence: US)
  Receive Date: 20210601
  Receipt Date: 20210601
  Transmission Date: 20210717
  Serious: No
  Sender: FDA-Public Use
  Company Number: None

PATIENT
  Age: 45 Year
  Sex: Female

DRUGS (1)
  1. MYOBLOC [Suspect]
     Active Substance: RIMABOTULINUMTOXINB
     Dosage: ?          OTHER STRENGTH:5000UNIT;?
     Route: 030
     Dates: start: 202103

REACTIONS (6)
  - Dry mouth [None]
  - Tinnitus [None]
  - Vision blurred [None]
  - Oral mucosal exfoliation [None]
  - Alopecia [None]
  - Dysphagia [None]

NARRATIVE: CASE EVENT DATE: 20210201
